FAERS Safety Report 25323646 (Version 1)
Quarter: 2025Q2

REPORT INFORMATION
  Report Type: Spontaneous
  Country: KR (occurrence: KR)
  Receive Date: 20250516
  Receipt Date: 20250516
  Transmission Date: 20250717
  Serious: Yes (Hospitalization, Disabling, Other)
  Sender: Norvium Bioscience
  Company Number: KR-Norvium Bioscience LLC-080167

PATIENT
  Age: 48 Year
  Sex: Female
  Weight: 0 kg

DRUGS (3)
  1. OXALIPLATIN [Suspect]
     Active Substance: OXALIPLATIN
     Indication: Metastases to ovary
  2. FLUOROURACIL [Suspect]
     Active Substance: FLUOROURACIL
     Indication: Metastases to ovary
  3. NIVOLUMAB [Suspect]
     Active Substance: NIVOLUMAB
     Indication: Metastases to ovary

REACTIONS (3)
  - Optic neuropathy [Not Recovered/Not Resolved]
  - Pseudopapilloedema [Not Recovered/Not Resolved]
  - Visual field defect [Not Recovered/Not Resolved]
